FAERS Safety Report 20818037 (Version 1)
Quarter: 2022Q2

REPORT INFORMATION
  Report Type: Spontaneous
  Country: US (occurrence: US)
  Receive Date: 20220512
  Receipt Date: 20220512
  Transmission Date: 20220721
  Serious: No
  Sender: FDA-Public Use
  Company Number: US-PFIZER INC-202101430923

PATIENT
  Age: 49 Year
  Sex: Female
  Weight: 50.8 kg

DRUGS (4)
  1. RELPAX [Suspect]
     Active Substance: ELETRIPTAN HYDROBROMIDE
     Indication: Migraine
     Dosage: (ONE TABLET BY MOUTH AT MIGRAINE ONSET AND MAY REPEAT AFTER TWO HOURS)
     Route: 048
  2. RELPAX [Suspect]
     Active Substance: ELETRIPTAN HYDROBROMIDE
     Indication: Headache
     Dosage: 40 MG (QUANTITY FOR 90 DAYS: 18)
  3. ELETRIPTAN HYDROBROMIDE [Suspect]
     Active Substance: ELETRIPTAN HYDROBROMIDE
     Dosage: 40 MG
  4. TIZANIDINE [Concomitant]
     Active Substance: TIZANIDINE
     Indication: Vertigo
     Dosage: UNK

REACTIONS (6)
  - Vertigo [Unknown]
  - Hypoacusis [Unknown]
  - Confusional state [Unknown]
  - Dyslexia [Not Recovered/Not Resolved]
  - Memory impairment [Unknown]
  - Blood oestrogen increased [Unknown]
